FAERS Safety Report 22139873 (Version 1)
Quarter: 2023Q1

REPORT INFORMATION
  Report Type: Spontaneous
  Country: NL (occurrence: NL)
  Receive Date: 20230327
  Receipt Date: 20230327
  Transmission Date: 20230417
  Serious: Yes (Death, Other)
  Sender: FDA-Public Use
  Company Number: NL-STRIDES ARCOLAB LIMITED-2023SP004295

PATIENT
  Age: 78 Year
  Sex: Male

DRUGS (11)
  1. PREDNISOLONE [Suspect]
     Active Substance: PREDNISOLONE
     Indication: VEXAS syndrome
     Dosage: 60 MILLIGRAM/DAY
     Route: 065
  2. PREDNISOLONE [Suspect]
     Active Substance: PREDNISOLONE
     Dosage: 5 MILLIGRAM/DAY, DOSE TAPERED
     Route: 065
  3. PREDNISOLONE [Suspect]
     Active Substance: PREDNISOLONE
     Dosage: UNK, DOSE TAPERED
     Route: 065
  4. METHOTREXATE [Suspect]
     Active Substance: METHOTREXATE
     Indication: VEXAS syndrome
     Dosage: UNK
     Route: 065
  5. CYCLOSPORINE [Suspect]
     Active Substance: CYCLOSPORINE
     Indication: VEXAS syndrome
     Dosage: 5 MILLIGRAM/KILOGRAM, THE PATIENT RECEIVED CICLOSPORINE 5 MG/KG BODY WEIGHT
     Route: 065
  6. ANAKINRA [Suspect]
     Active Substance: ANAKINRA
     Indication: VEXAS syndrome
     Dosage: 100 MILLIGRAM/DAY
     Route: 058
     Dates: start: 2019
  7. ANAKINRA [Suspect]
     Active Substance: ANAKINRA
     Dosage: 100 MILLIGRAM/DAY, THE MAN RESTARTED WITH SC ANAKINRA 100MG PER DAY INJECTION
     Route: 058
     Dates: start: 201911
  8. TOCILIZUMAB [Suspect]
     Active Substance: TOCILIZUMAB
     Indication: VEXAS syndrome
     Dosage: 162 MILLIGRAM, ONCE A WEEK
     Route: 058
     Dates: start: 201912
  9. TOCILIZUMAB [Suspect]
     Active Substance: TOCILIZUMAB
     Dosage: 8 MILLIGRAM/KILOGRAM, THE MAN RECEIVED IV TOCILIZUMAB 8 MG/KG BODY WEIGHT
     Route: 042
     Dates: start: 202008
  10. CANAKINUMAB [Suspect]
     Active Substance: CANAKINUMAB
     Indication: VEXAS syndrome
     Dosage: 300 MILLIGRAM, ONCE A MONTH
     Route: 058
  11. DARBEPOETIN ALFA [Suspect]
     Active Substance: DARBEPOETIN ALFA
     Indication: Anaemia macrocytic
     Dosage: UNK
     Route: 065
     Dates: start: 201906

REACTIONS (3)
  - Death [Fatal]
  - Nephropathy toxic [Unknown]
  - Off label use [Unknown]

NARRATIVE: CASE EVENT DATE: 20201101
